FAERS Safety Report 24112441 (Version 1)
Quarter: 2024Q3

REPORT INFORMATION
  Report Type: Spontaneous
  Country: AT (occurrence: None)
  Receive Date: 20240719
  Receipt Date: 20240719
  Transmission Date: 20241017
  Serious: Yes (Other)
  Sender: ASTRAZENECA
  Company Number: 2024A161629

PATIENT
  Sex: Female

DRUGS (9)
  1. ANDEXANET ALFA [Suspect]
     Active Substance: ANDEXANET ALFA
     Route: 042
  2. LEVOTHYROXINE SODIUM [Concomitant]
     Active Substance: LEVOTHYROXINE SODIUM
  3. ASCORBIC ACID\CALCIUM PHOSPHATE\CHOLECALCIFEROL\CITRIC ACID MONOHYDRAT [Concomitant]
     Active Substance: ASCORBIC ACID\CALCIUM PHOSPHATE\CHOLECALCIFEROL\CITRIC ACID MONOHYDRATE
  4. LINAGLIPTIN [Concomitant]
     Active Substance: LINAGLIPTIN
  5. PANTOPRAZOLE SODIUM [Concomitant]
     Active Substance: PANTOPRAZOLE SODIUM
     Dosage: 40
  6. BISOPROLOL FUMARATE [Concomitant]
     Active Substance: BISOPROLOL FUMARATE
     Dosage: 10
  7. RAMICOMP RAMIPRIL [Concomitant]
     Dosage: 5
  8. LASIX [Concomitant]
     Active Substance: FUROSEMIDE
     Dosage: 1 X WEEKLY
  9. ELIQUIS [Concomitant]
     Active Substance: APIXABAN
     Dosage: 2,5 MG 2 X DAILY

REACTIONS (5)
  - Cardiac ventricular thrombosis [Unknown]
  - Coronary artery embolism [Unknown]
  - Cerebral thrombosis [Unknown]
  - Cerebral artery embolism [Unknown]
  - Haemorrhage [Unknown]
